FAERS Safety Report 8160759-7 (Version None)
Quarter: 2012Q1

REPORT INFORMATION
  Report Type: 
  Country: None (occurrence: None)
  Receive Date: 20120223
  Receipt Date: 20120214
  Transmission Date: 20120608
  Serious: Yes (Other)
  Sender: FDA-Public Use
  Company Number: PHHY2012CO013606

PATIENT
  Sex: Female

DRUGS (4)
  1. DIOVAN [Suspect]
     Dosage: 40 MG, BID
     Route: 048
  2. DIOVAN [Suspect]
     Indication: HYPERTENSION
     Dosage: 40 MG, DAILY
     Route: 048
     Dates: start: 20081010
  3. LEXOTAN [Concomitant]
  4. IMOVANE [Concomitant]

REACTIONS (10)
  - DYSPNOEA [None]
  - ORAL DISCOMFORT [None]
  - WEIGHT DECREASED [None]
  - OROPHARYNGEAL BLISTERING [None]
  - RHINITIS [None]
  - DYSPEPSIA [None]
  - DYSPHAGIA [None]
  - PHARYNGITIS [None]
  - HYPOPHAGIA [None]
  - GINGIVAL PAIN [None]
